FAERS Safety Report 12447584 (Version 1)
Quarter: 2016Q2

REPORT INFORMATION
  Report Type: Spontaneous
  Country: FR (occurrence: FR)
  Receive Date: 20160608
  Receipt Date: 20160608
  Transmission Date: 20160815
  Serious: Yes (Hospitalization, Other)
  Sender: FDA-Public Use
  Company Number: FR-PFIZER INC-2016287263

PATIENT
  Age: 43 Year
  Sex: Male
  Weight: 88 kg

DRUGS (10)
  1. TAHOR [Concomitant]
     Active Substance: ATORVASTATIN CALCIUM
     Dosage: 20 MG, 1X/DAY
  2. EFFEXOR [Suspect]
     Active Substance: VENLAFAXINE HYDROCHLORIDE
     Dosage: 375 MG, SINGLE
     Route: 048
     Dates: start: 20160504, end: 20160504
  3. TRANXENE T-TAB [Suspect]
     Active Substance: CLORAZEPATE DIPOTASSIUM
     Dosage: 70 MG, SINGLE
     Route: 048
     Dates: start: 20160504, end: 20160504
  4. METFORMIN HCL [Suspect]
     Active Substance: METFORMIN HYDROCHLORIDE
     Dosage: 3 G, SINGLE
     Route: 048
     Dates: start: 20160504, end: 20160504
  5. KARDEGIC [Concomitant]
     Active Substance: ASPIRIN LYSINE
     Dosage: 75 MG, 1X/DAY
  6. STILNOX [Concomitant]
     Active Substance: ZOLPIDEM TARTRATE
     Dosage: 1 DF, 1X/DAY IN THE EVENING
  7. ZOLPIDEM [Suspect]
     Active Substance: ZOLPIDEM\ZOLPIDEM TARTRATE
     Dosage: 60 MG, SINGLE
     Route: 048
     Dates: start: 20160504, end: 20160504
  8. METFORMIN HCL [Suspect]
     Active Substance: METFORMIN HYDROCHLORIDE
     Dosage: 1 DF OF 850 MG, 3X/DAY
     Route: 048
  9. TRANXENE T-TAB [Suspect]
     Active Substance: CLORAZEPATE DIPOTASSIUM
     Dosage: 10 MG, 1X/DAY IN THE EVENING
     Route: 048
  10. TIAPRIDAL /00435701/ [Concomitant]
     Active Substance: TIAPRIDE HYDROCHLORIDE
     Dosage: 0.5 DF OF 100 MG, 3X/DAY

REACTIONS (7)
  - Poisoning deliberate [Unknown]
  - Tachycardia [Recovered/Resolved]
  - Hyperlactacidaemia [Recovered/Resolved]
  - Vomiting [Recovered/Resolved]
  - Intentional overdose [Unknown]
  - Metabolic acidosis [Recovered/Resolved]
  - Nausea [Unknown]

NARRATIVE: CASE EVENT DATE: 20160504
